FAERS Safety Report 9473698 (Version 1)
Quarter: 2013Q3

REPORT INFORMATION
  Report Type: Spontaneous
  Country: US (occurrence: US)
  Receive Date: 20130823
  Receipt Date: 20130823
  Transmission Date: 20140515
  Serious: No
  Sender: FDA-Public Use
  Company Number: US-BRISTOL-MYERS SQUIBB COMPANY-16911042

PATIENT
  Age: 56 Year
  Sex: Female

DRUGS (1)
  1. SPRYCEL [Suspect]
     Dates: start: 20120818

REACTIONS (7)
  - Headache [Unknown]
  - Groin pain [Unknown]
  - Dizziness [Unknown]
  - Rash [Unknown]
  - Erythema [Unknown]
  - Haemoglobin decreased [Unknown]
  - Platelet count decreased [Unknown]
